FAERS Safety Report 22246431 (Version 1)
Quarter: 2023Q2

REPORT INFORMATION
  Report Type: Spontaneous
  Country: LT (occurrence: None)
  Receive Date: 20230424
  Receipt Date: 20230424
  Transmission Date: 20230722
  Serious: Yes (Hospitalization)
  Sender: FDA-Public Use
  Company Number: 2023A095281

PATIENT
  Age: 75 Year
  Sex: Male
  Weight: 120 kg

DRUGS (6)
  1. ACLIDINIUM BROMIDE\FORMOTEROL FUMARATE [Suspect]
     Active Substance: ACLIDINIUM BROMIDE\FORMOTEROL FUMARATE
     Indication: Obstructive airways disorder
     Dosage: 340 MICROGRAMS /12 MICROGRAMS INHALATION POWDER
     Dates: start: 202211
  2. PLAVIX [Concomitant]
     Active Substance: CLOPIDOGREL BISULFATE
     Indication: Anticoagulant therapy
     Dosage: 1 DOSAGE FORM
  3. PHEZAM [Concomitant]
     Indication: Vertigo
  4. VENTOLIN [Concomitant]
     Active Substance: ALBUTEROL SULFATE
     Indication: Asthma
     Dosage: 1 DOSAGE FORM
  5. VALSARTAN [Concomitant]
     Active Substance: VALSARTAN
     Indication: Hypertension
     Dosage: 1 DOSAGE FORM
  6. INSULIN ASPART [Concomitant]
     Active Substance: INSULIN ASPART
     Indication: Diabetes mellitus
     Dosage: 1 DF
     Route: 058

REACTIONS (4)
  - Speech disorder [Not Recovered/Not Resolved]
  - Dysphagia [Not Recovered/Not Resolved]
  - Lip disorder [Not Recovered/Not Resolved]
  - Swollen tongue [Not Recovered/Not Resolved]

NARRATIVE: CASE EVENT DATE: 20230320
